FAERS Safety Report 10361367 (Version 7)
Quarter: 2022Q4

REPORT INFORMATION
  Report Type: Other
  Country: US (occurrence: None)
  Receive Date: 20140805
  Receipt Date: 20221013
  Transmission Date: 20230113
  Serious: Yes (Hospitalization, Other)
  Sender: FDA-Public Use
  Company Number: US-ROCHE-1444666

PATIENT
  Age: 57 Year
  Sex: Male
  Weight: 85.352 kg

DRUGS (21)
  1. NUTROPIN [Suspect]
     Active Substance: SOMATROPIN
     Indication: Growth hormone deficiency
     Route: 058
     Dates: start: 20100226
  2. NUTROPIN [Suspect]
     Active Substance: SOMATROPIN
     Indication: Hypopituitarism
     Dosage: 3 INJ/WEEK
     Route: 058
  3. NUTROPIN [Suspect]
     Active Substance: SOMATROPIN
     Dosage: 3 INJ/WEEK;ONGOING:YES
     Route: 058
  4. NUTROPIN [Suspect]
     Active Substance: SOMATROPIN
     Dosage: 3 INJ/WEEK; ONGOING:YES
     Route: 058
  5. NUTROPIN [Suspect]
     Active Substance: SOMATROPIN
     Dosage: 3X WEEK QOD
     Route: 058
     Dates: start: 20220519
  6. CORTEF [Concomitant]
     Active Substance: HYDROCORTISONE
     Dosage: 1 TABLET BY MOUTH EVERY MORNING AND AFTERNOON
     Route: 048
  7. CORTEF [Concomitant]
     Active Substance: HYDROCORTISONE
     Route: 048
  8. LIPITOR [Concomitant]
     Active Substance: ATORVASTATIN CALCIUM
     Dosage: 1 TABLET BY MOUTH EVERY OTHER DAY
     Route: 048
  9. VANCOMYCIN [Concomitant]
     Active Substance: VANCOMYCIN
  10. CALCIUM CARBONATE [Concomitant]
     Active Substance: CALCIUM CARBONATE
  11. PEPCID [Concomitant]
     Active Substance: FAMOTIDINE
  12. FLUTICASONE PROPIONATE [Concomitant]
     Active Substance: FLUTICASONE PROPIONATE
  13. GUAIFENESIN [Concomitant]
     Active Substance: GUAIFENESIN
  14. CODEINE [Concomitant]
     Active Substance: CODEINE
  15. HYDROCORTISONE [Concomitant]
     Active Substance: HYDROCORTISONE
  16. IPRATROPIUM [Concomitant]
     Active Substance: IPRATROPIUM
  17. ALBUTEROL [Concomitant]
     Active Substance: ALBUTEROL
  18. MAGNESIUM OXIDE [Concomitant]
     Active Substance: MAGNESIUM OXIDE
  19. MELATONIN [Concomitant]
     Active Substance: MELATONIN
  20. PROBIOTICS NOS [Concomitant]
     Active Substance: PROBIOTICS NOS
  21. MINERALS\VITAMINS [Concomitant]
     Active Substance: MINERALS\VITAMINS

REACTIONS (17)
  - Insulin-like growth factor increased [Unknown]
  - Fatigue [Unknown]
  - Arthralgia [Unknown]
  - Myalgia [Not Recovered/Not Resolved]
  - Weight increased [Unknown]
  - Cardiac murmur [Unknown]
  - Blood triglycerides increased [Unknown]
  - Low density lipoprotein increased [Unknown]
  - Mean cell haemoglobin increased [Unknown]
  - Lymphocyte count decreased [Unknown]
  - Neutrophil count increased [Unknown]
  - Pain in extremity [Unknown]
  - Hypoaesthesia [Unknown]
  - Paraesthesia [Unknown]
  - Septic shock [Unknown]
  - Multiple organ dysfunction syndrome [Unknown]
  - Pulmonary fibrosis [Unknown]

NARRATIVE: CASE EVENT DATE: 20130701
